FAERS Safety Report 4722518-4 (Version None)
Quarter: 2005Q3

REPORT INFORMATION
  Report Type: 
  Country: None (occurrence: None)
  Receive Date: 20050720
  Receipt Date: 20050707
  Transmission Date: 20060218
  Serious: Yes (Hospitalization, Other)
  Sender: FDA-Public Use
  Company Number: 2003115340

PATIENT
  Sex: Female

DRUGS (1)
  1. NEURONTIN [Suspect]
     Indication: POST-TRAUMATIC STRESS DISORDER
     Dates: start: 19990829, end: 20030101

REACTIONS (25)
  - ABDOMINAL PAIN [None]
  - ABNORMAL BEHAVIOUR [None]
  - AGITATION [None]
  - ANOREXIA [None]
  - ANXIETY [None]
  - ARTHRITIS [None]
  - BALANCE DISORDER [None]
  - CONDITION AGGRAVATED [None]
  - DEHYDRATION [None]
  - DEPRESSION [None]
  - DIABETES MELLITUS [None]
  - DIARRHOEA [None]
  - HOSTILITY [None]
  - IMPULSIVE BEHAVIOUR [None]
  - INSOMNIA [None]
  - MANIA [None]
  - MOOD SWINGS [None]
  - MUSCLE SPASMS [None]
  - OBESITY [None]
  - PARALYSIS [None]
  - PNEUMONIA [None]
  - SUICIDAL IDEATION [None]
  - SUICIDE ATTEMPT [None]
  - TREMOR [None]
  - VISUAL DISTURBANCE [None]
